APPROVED DRUG PRODUCT: MONUROL
Active Ingredient: FOSFOMYCIN TROMETHAMINE
Strength: EQ 3GM BASE/PACKET **Federal Register determination that product was not discontinued or withdrawn for safety or effectiveness reasons**
Dosage Form/Route: FOR SOLUTION;ORAL
Application: N050717 | Product #001
Applicant: ZAMBON SPA ITALY
Approved: Dec 19, 1996 | RLD: Yes | RS: No | Type: DISCN